FAERS Safety Report 8046103-4 (Version None)
Quarter: 2012Q1

REPORT INFORMATION
  Report Type: 
  Country: None (occurrence: None)
  Receive Date: 20120113
  Receipt Date: 20120110
  Transmission Date: 20120608
  Serious: No
  Sender: FDA-Public Use
  Company Number: US-PFIZER INC-2012007863

PATIENT
  Sex: Female
  Weight: 74.83 kg

DRUGS (3)
  1. PROZAC [Concomitant]
     Indication: DEPRESSION
     Dosage: UNK
  2. NEURONTIN [Suspect]
     Indication: PAIN
  3. NEURONTIN [Suspect]
     Indication: FIBROMYALGIA
     Dosage: 300 MG, 1X/DAY
     Route: 048
     Dates: start: 20111201

REACTIONS (2)
  - PAIN [None]
  - GASTROOESOPHAGEAL REFLUX DISEASE [None]
